FAERS Safety Report 16474757 (Version 1)
Quarter: 2019Q2

REPORT INFORMATION
  Report Type: Spontaneous
  Country: US (occurrence: US)
  Receive Date: 20190515
  Receipt Date: 20190515
  Transmission Date: 20190711
  Serious: Yes (Hospitalization)
  Sender: FDA-Public Use
  Company Number: None

PATIENT
  Age: 58 Year
  Sex: Female

DRUGS (14)
  1. CALCIUM    CARBONATE-VIT D3 [Concomitant]
  2. DIGOXIN. [Concomitant]
     Active Substance: DIGOXIN
  3. FLUTICASONE. [Concomitant]
     Active Substance: FLUTICASONE
  4. PERCOCET [Concomitant]
     Active Substance: ACETAMINOPHEN\OXYCODONE HYDROCHLORIDE
  5. KLOR-CON [Concomitant]
     Active Substance: POTASSIUM CHLORIDE
  6. AMIODARONE [Concomitant]
     Active Substance: AMIODARONE
  7. ELIQUIS [Concomitant]
     Active Substance: APIXABAN
  8. PEDIA-LAX [Concomitant]
     Active Substance: SODIUM PHOSPHATE, DIBASIC, HEPTAHYDRATE\SODIUM PHOSPHATE, MONOBASIC
  9. TORSEMIDE. [Concomitant]
     Active Substance: TORSEMIDE
  10. OPSUMIT [Suspect]
     Active Substance: MACITENTAN
     Indication: PULMONARY ARTERIAL HYPERTENSION
     Route: 048
     Dates: start: 201812
  11. PANTOPRAZOLE [Concomitant]
     Active Substance: PANTOPRAZOLE
  12. FERROUS SULFATE. [Concomitant]
     Active Substance: FERROUS SULFATE
  13. CALCITRIOL. [Concomitant]
     Active Substance: CALCITRIOL
  14. MIDODRINE [Concomitant]
     Active Substance: MIDODRINE

REACTIONS (9)
  - Syncope [None]
  - Atrial fibrillation [None]
  - Pyrexia [None]
  - Blood pressure systolic decreased [None]
  - Sepsis [None]
  - Nausea [None]
  - Leukocytosis [None]
  - Clostridium difficile colitis [None]
  - Diarrhoea [None]

NARRATIVE: CASE EVENT DATE: 20190502
